FAERS Safety Report 8724356 (Version 3)
Quarter: 2013Q1

REPORT INFORMATION
  Report Type: Spontaneous
  Country: GB (occurrence: None)
  Receive Date: 20120727
  Receipt Date: 20120924
  Transmission Date: 20140127
  Serious: Yes (Disabling)
  Sender: FDA-Public Use
  Company Number: GER/UKI/12/0025166

PATIENT
  Age: 15 Year
  Sex: Female

DRUGS (4)
  1. PROZAC (FLUOXETINE HYDROCHLORIDE) [Suspect]
     Indication: ANXIETY
     Dates: start: 20120618, end: 20120702
  2. PROZAC (FLUOXETINE HYDROCHLORIDE) [Suspect]
     Indication: ASPERGER^S DISORDER
     Dates: start: 20120618, end: 20120702
  3. PROZAC (FLUOXETINE HYDROCHLORIDE) [Suspect]
     Indication: OBSESSIVE THOUGHTS
     Dates: start: 20120618, end: 20120702
  4. SEROQUEL [Concomitant]

REACTIONS (3)
  - Amnesia [None]
  - Confusional state [None]
  - Disorientation [None]
